FAERS Safety Report 19096167 (Version 1)
Quarter: 2021Q2

REPORT INFORMATION
  Report Type: Report from Study
  Country: NL (occurrence: NL)
  Receive Date: 20210406
  Receipt Date: 20210406
  Transmission Date: 20210717
  Serious: Yes (Death, Disabling, Other)
  Sender: FDA-Public Use
  Company Number: NL-AUROBINDO-AUR-APL-2021-013469

PATIENT
  Sex: Female

DRUGS (2)
  1. MELPHALAN. [Suspect]
     Active Substance: MELPHALAN
     Indication: NEUROENDOCRINE CARCINOMA OF THE SKIN
     Dosage: UNK
     Route: 042
  2. HEPARIN SODIUM. [Concomitant]
     Active Substance: HEPARIN SODIUM
     Indication: SURGICAL PRECONDITIONING
     Dosage: UNK
     Route: 065

REACTIONS (5)
  - Metabolic acidosis [Fatal]
  - Peripheral ischaemia [Unknown]
  - Toxicity to various agents [Unknown]
  - Renal failure [Fatal]
  - Rhabdomyolysis [Fatal]
